FAERS Safety Report 5300418-9 (Version None)
Quarter: 2007Q2

REPORT INFORMATION
  Report Type: 
  Country: None (occurrence: None)
  Receive Date: 20070418
  Receipt Date: 20070404
  Transmission Date: 20071010
  Serious: Yes (Other)
  Sender: FDA-Public Use
  Company Number: PHFR2007GB01268

PATIENT
  Sex: Female

DRUGS (1)
  1. SYNTOCINON [Suspect]

REACTIONS (3)
  - DRUG ABUSER [None]
  - DRUG EXPOSURE DURING PREGNANCY [None]
  - OVERDOSE [None]
